FAERS Safety Report 14794540 (Version 1)
Quarter: 2018Q2

REPORT INFORMATION
  Report Type: Spontaneous
  Country: BR (occurrence: BR)
  Receive Date: 20180423
  Receipt Date: 20180423
  Transmission Date: 20180711
  Serious: Yes (Other)
  Sender: FDA-Public Use
  Company Number: BR-JUBILANT CADISTA PHARMACEUTICALS-2018JUB00132

PATIENT
  Age: 70 Year
  Sex: Male

DRUGS (2)
  1. ANTI-LEPROSY TREATMENT [Concomitant]
     Route: 065
  2. PREDNISONE. [Suspect]
     Active Substance: PREDNISONE
     Indication: LEPROMATOUS LEPROSY
     Dosage: 60 MG, 1X/DAY
     Route: 065

REACTIONS (2)
  - Pulmonary embolism [Unknown]
  - Deep vein thrombosis [Unknown]

NARRATIVE: CASE EVENT DATE: 200705
